FAERS Safety Report 24048306 (Version 3)
Quarter: 2024Q4

REPORT INFORMATION
  Report Type: Spontaneous
  Country: US (occurrence: US)
  Receive Date: 20240704
  Receipt Date: 20241008
  Transmission Date: 20250115
  Serious: No
  Sender: SANOFI AVENTIS
  Company Number: US-SA-SAC20240701001076

PATIENT
  Age: 19 Year
  Sex: Female
  Weight: 84.45 kg

DRUGS (1)
  1. DUPIXENT [Suspect]
     Active Substance: DUPILUMAB
     Indication: Dermatitis atopic
     Dosage: 2 DF, QOW
     Route: 058
     Dates: end: 20240619

REACTIONS (8)
  - Epistaxis [Unknown]
  - Furuncle [Unknown]
  - Periorbital swelling [Unknown]
  - Illness [Unknown]
  - Dermatitis atopic [Unknown]
  - Skin swelling [Unknown]
  - Rash [Unknown]
  - Extra dose administered [Unknown]

NARRATIVE: CASE EVENT DATE: 20240801
